FAERS Safety Report 21543924 (Version 2)
Quarter: 2022Q4

REPORT INFORMATION
  Report Type: Spontaneous
  Country: AU (occurrence: AU)
  Receive Date: 20221102
  Receipt Date: 20221226
  Transmission Date: 20230113
  Serious: Yes (Hospitalization)
  Sender: FDA-Public Use
  Company Number: AU-NAPPMUNDI-GBR-2022-0102574

PATIENT
  Age: 66 Year
  Sex: Female
  Weight: 177 kg

DRUGS (3)
  1. NORSPAN [Suspect]
     Active Substance: BUPRENORPHINE
     Indication: Back pain
     Dosage: 10 MCG, WEEKLY
     Route: 062
     Dates: start: 2021
  2. NORSPAN [Suspect]
     Active Substance: BUPRENORPHINE
     Dosage: 20 MCG
     Route: 062
  3. NORSPAN [Suspect]
     Active Substance: BUPRENORPHINE
     Dosage: 10 MCG
     Route: 062

REACTIONS (2)
  - Idiosyncratic drug reaction [Unknown]
  - Therapeutic product effect decreased [Unknown]
